FAERS Safety Report 22537461 (Version 1)
Quarter: 2023Q2

REPORT INFORMATION
  Report Type: Spontaneous
  Country: US (occurrence: None)
  Receive Date: 20230608
  Receipt Date: 20230608
  Transmission Date: 20230721
  Serious: No
  Sender: FDA-Public Use
  Company Number: 2023A129796

PATIENT

DRUGS (1)
  1. FARXIGA [Suspect]
     Active Substance: DAPAGLIFLOZIN PROPANEDIOL
     Indication: Protein urine
     Dosage: 5.0MG UNKNOWN
     Route: 048

REACTIONS (13)
  - Blood urine present [Unknown]
  - Burning sensation [Unknown]
  - Peripheral swelling [Unknown]
  - Gait disturbance [Unknown]
  - Limb discomfort [Unknown]
  - Sciatica [Unknown]
  - Radiculopathy [Unknown]
  - Abdominal discomfort [Unknown]
  - Fatigue [Unknown]
  - Dyspnoea [Unknown]
  - Nausea [Unknown]
  - Urinary tract infection [Unknown]
  - Pollakiuria [Unknown]
